FAERS Safety Report 25317603 (Version 1)
Quarter: 2025Q2

REPORT INFORMATION
  Report Type: Spontaneous
  Country: IT (occurrence: IT)
  Receive Date: 20250515
  Receipt Date: 20250515
  Transmission Date: 20250717
  Serious: No
  Sender: ALKEM
  Company Number: IT-ALKEM LABORATORIES LIMITED-IT-ALKEM-2024-16404

PATIENT
  Age: 60 Year
  Sex: Male

DRUGS (7)
  1. AZATHIOPRINE [Suspect]
     Active Substance: AZATHIOPRINE
     Indication: Myasthenia gravis
     Route: 065
  2. AZATHIOPRINE [Suspect]
     Active Substance: AZATHIOPRINE
     Route: 065
  3. AZATHIOPRINE [Suspect]
     Active Substance: AZATHIOPRINE
     Route: 065
  4. AZATHIOPRINE [Suspect]
     Active Substance: AZATHIOPRINE
     Route: 065
  5. PYRIDOSTIGMINE BROMIDE [Suspect]
     Active Substance: PYRIDOSTIGMINE BROMIDE
     Indication: Myasthenia gravis
     Route: 065
  6. PYRIDOSTIGMINE BROMIDE [Suspect]
     Active Substance: PYRIDOSTIGMINE BROMIDE
     Route: 065
  7. PYRIDOSTIGMINE BROMIDE [Suspect]
     Active Substance: PYRIDOSTIGMINE BROMIDE
     Route: 065

REACTIONS (13)
  - Affective disorder [Unknown]
  - Decreased appetite [Unknown]
  - Dyspnoea [Unknown]
  - Depressed mood [Unknown]
  - Drug intolerance [Unknown]
  - Infrequent bowel movements [Unknown]
  - Irritability [Unknown]
  - Palpitations [Unknown]
  - Swelling [Unknown]
  - Vomiting [Unknown]
  - Malaise [Unknown]
  - Abdominal pain upper [Unknown]
  - Abdominal pain [Unknown]
